FAERS Safety Report 8816288 (Version 1)
Quarter: 2012Q4

REPORT INFORMATION
  Report Type: 
  Country: US (occurrence: US)
  Receive Date: 20121001
  Receipt Date: 20121001
  Transmission Date: 20130627
  Serious: No
  Sender: FDA-Public Use
  Company Number: US-009507513-2012SP023040

PATIENT
  Age: 25 Year
  Sex: Female

DRUGS (4)
  1. REBETOL [Suspect]
     Dosage: 1200 mg, QD
     Route: 048
     Dates: start: 20110802, end: 20120105
  2. PEG-INTRON [Suspect]
     Indication: HEPATITIS C
     Dosage: 180 ?g, QW
     Route: 058
     Dates: start: 20110802, end: 20120105
  3. METHADONE HYDROCHLORIDE [Concomitant]
     Indication: DRUG DEPENDENCE
     Dosage: 57 mg, QD
  4. MACROBID (NITROFURANTOIN) [Concomitant]
     Indication: URINARY TRACT INFECTION
     Dosage: UNK
     Dates: start: 20120427

REACTIONS (2)
  - Urinary tract infection [Not Recovered/Not Resolved]
  - Exposure during pregnancy [Unknown]
